FAERS Safety Report 17848139 (Version 1)
Quarter: 2020Q2

REPORT INFORMATION
  Report Type: Spontaneous
  Country: US (occurrence: US)
  Receive Date: 20200601
  Receipt Date: 20200601
  Transmission Date: 20200714
  Serious: No
  Sender: FDA-Public Use
  Company Number: US-GLAXOSMITHKLINE-US2020090112

PATIENT

DRUGS (1)
  1. FLONASE [Suspect]
     Active Substance: FLUTICASONE PROPIONATE
     Indication: SNEEZING
     Dosage: UNK

REACTIONS (4)
  - Wrong technique in product usage process [Unknown]
  - Lip injury [Unknown]
  - Product package associated injury [Unknown]
  - Product complaint [Unknown]
